FAERS Safety Report 8269879-X (Version None)
Quarter: 2012Q2

REPORT INFORMATION
  Report Type: 
  Country: None (occurrence: None)
  Receive Date: 20120410
  Receipt Date: 20120403
  Transmission Date: 20120825
  Serious: Yes (Other)
  Sender: FDA-Public Use
  Company Number: US-PFIZER INC-2012084345

PATIENT
  Sex: Female
  Weight: 54.422 kg

DRUGS (7)
  1. GABAPENTIN [Suspect]
     Indication: NEUROPATHY PERIPHERAL
     Dosage: 300 MG, 2X/DAY
     Dates: start: 20111001
  2. OMEPRAZOLE [Concomitant]
     Indication: GASTRIC DISORDER
     Dosage: UNK
  3. CENTRUM [Concomitant]
     Dosage: UNK
  4. LORAZEPAM [Concomitant]
     Indication: SLEEP DISORDER
     Dosage: 1 MG, DAILY
  5. TEGRETOL [Suspect]
     Indication: DEPRESSION
     Dosage: 200 MG, DAILY
  6. LEVOTHYROXINE [Concomitant]
     Indication: THYROID DISORDER
     Dosage: 50 UG, DAILY
  7. ACETYLSALICYLIC ACID [Concomitant]
     Indication: CARDIOVASCULAR EVENT PROPHYLAXIS
     Dosage: 81 MG, DAILY

REACTIONS (1)
  - SPEECH DISORDER [None]
